FAERS Safety Report 8519091-1 (Version None)
Quarter: 2012Q3

REPORT INFORMATION
  Report Type: 
  Country: None (occurrence: None)
  Receive Date: 20120712
  Receipt Date: 20120712
  Transmission Date: 20120928
  Serious: Yes (Hospitalization)
  Sender: FDA-Public Use
  Company Number: None

PATIENT
  Age: 89 Year
  Sex: Male
  Weight: 75.7 kg

DRUGS (2)
  1. NAPROXEN [Suspect]
     Indication: PAIN
     Dosage: 375 MG TID PO
     Route: 048
     Dates: start: 20110111, end: 20120216
  2. SULINDAC [Suspect]
     Indication: PAIN
     Dosage: 150 MG BID PO
     Route: 048
     Dates: start: 20111115, end: 20120216

REACTIONS (5)
  - MELAENA [None]
  - DIZZINESS [None]
  - GASTRITIS [None]
  - ANAEMIA [None]
  - DYSPNOEA [None]
